FAERS Safety Report 24609570 (Version 1)
Quarter: 2024Q4

REPORT INFORMATION
  Report Type: Spontaneous
  Country: CN (occurrence: CN)
  Receive Date: 20241112
  Receipt Date: 20241112
  Transmission Date: 20250115
  Serious: Yes (Death, Life-Threatening, Hospitalization)
  Sender: PFIZER
  Company Number: CN-MLMSERVICE-20241101-PI247575-00270-1

PATIENT
  Age: 69 Year
  Sex: Male

DRUGS (6)
  1. METHYLPREDNISOLONE SODIUM SUCCINATE [Suspect]
     Active Substance: METHYLPREDNISOLONE SODIUM SUCCINATE
     Indication: Immune-mediated myocarditis
     Dosage: INJECTION 500 MG INTRAVENOUSLY DAILY WAS INITIATED
     Route: 042
     Dates: start: 20230426, end: 20230430
  2. ALBUMIN HUMAN/PACLITAXEL [Concomitant]
     Indication: Oesophageal squamous cell carcinoma
     Dosage: 400 MG, 1X/DAY (EVERY 21 DAYS CYCLE)
     Dates: start: 20230424
  3. CISPLATIN [Concomitant]
     Active Substance: CISPLATIN
     Indication: Oesophageal squamous cell carcinoma
     Dosage: 60 MG, 1X/DAY (EVERY 21 DAYS CYCLE)
     Dates: start: 20230424
  4. CAMRELIZUMAB [Concomitant]
     Active Substance: CAMRELIZUMAB
     Indication: Oesophageal squamous cell carcinoma
     Dosage: 200 MG, 1X/DAY (EVERY 21 DAYS CYCLE)
     Route: 042
     Dates: start: 20230424
  5. MONTMORILLONITE [Concomitant]
     Active Substance: MONTMORILLONITE
     Indication: Diarrhoea
     Dosage: UNK
     Dates: start: 20230424
  6. LEVOFLOXACIN [Concomitant]
     Active Substance: LEVOFLOXACIN
     Indication: Infection
     Dosage: UNK
     Dates: start: 20230424

REACTIONS (2)
  - Gastrointestinal haemorrhage [Fatal]
  - Off label use [Unknown]

NARRATIVE: CASE EVENT DATE: 20230430
